FAERS Safety Report 9880124 (Version 1)
Quarter: 2014Q1

REPORT INFORMATION
  Report Type: Spontaneous
  Country: US (occurrence: US)
  Receive Date: 20140207
  Receipt Date: 20140207
  Transmission Date: 20141002
  Serious: Yes (Other)
  Sender: FDA-Public Use
  Company Number: US-BIOGENIDEC-2014BI010558

PATIENT
  Age: 65 Year
  Sex: Male

DRUGS (11)
  1. TECFIDERA [Suspect]
     Indication: MULTIPLE SCLEROSIS
     Route: 048
     Dates: start: 20130723
  2. AMITRIPTYLINE [Concomitant]
  3. ASPIRIN [Concomitant]
  4. ATENOLOL [Concomitant]
  5. HYDROCHLOROTHIAZIDE [Concomitant]
  6. IBUPROFEN [Concomitant]
  7. MECLIZINE [Concomitant]
  8. METOPROLOL TARTRATE [Concomitant]
  9. OMEPRAZOLE [Concomitant]
  10. ROPINIROLE [Concomitant]
  11. ZOLPIDERM TARTRATE [Concomitant]

REACTIONS (1)
  - Convulsion [Unknown]
